FAERS Safety Report 10174230 (Version 1)
Quarter: 2014Q2

REPORT INFORMATION
  Report Type: Spontaneous
  Country: US (occurrence: None)
  Receive Date: 20140514
  Receipt Date: 20140514
  Transmission Date: 20141212
  Serious: Yes (Hospitalization, Disabling)
  Sender: FDA-Public Use
  Company Number: None

PATIENT
  Age: 50 Year
  Sex: Female
  Weight: 55.34 kg

DRUGS (1)
  1. SIMPONI ARIA [Suspect]
     Indication: RHEUMATOID ARTHRITIS
     Dosage: INFUSION EVERY SIX WEEKS INTO A VEIN
     Route: 042

REACTIONS (11)
  - Chest pain [None]
  - No therapeutic response [None]
  - Hypoaesthesia [None]
  - Cardiac flutter [None]
  - Palpitations [None]
  - Pain [None]
  - Rash [None]
  - Raynaud^s phenomenon [None]
  - Neuropathy peripheral [None]
  - Condition aggravated [None]
  - Procedural haemorrhage [None]
